FAERS Safety Report 8814497 (Version 1)
Quarter: 2012Q4

REPORT INFORMATION
  Report Type: 
  Country: IT (occurrence: IT)
  Receive Date: 20120928
  Receipt Date: 20120928
  Transmission Date: 20130627
  Serious: Yes (Other)
  Sender: FDA-Public Use
  Company Number: IT-ASTELLAS-2012EU007052

PATIENT
  Age: 48 Year
  Sex: Male

DRUGS (2)
  1. SOLIFENACIN [Suspect]
     Indication: HYPERTONIC BLADDER
     Dosage: 5 mg, UID/QD
     Route: 048
  2. COCAINE [Interacting]
     Dosage: UNK
     Route: 065

REACTIONS (2)
  - Drug interaction [Unknown]
  - Schizophreniform disorder [Recovered/Resolved]
